FAERS Safety Report 10978058 (Version 2)
Quarter: 2015Q2

REPORT INFORMATION
  Report Type: Spontaneous
  Country: US (occurrence: US)
  Receive Date: 20150402
  Receipt Date: 20150603
  Transmission Date: 20150821
  Serious: No
  Sender: FDA-Public Use
  Company Number: US-GLAXOSMITHKLINE-US2015GSK043248

PATIENT
  Age: 59 Year
  Sex: Female
  Weight: 50.34 kg

DRUGS (11)
  1. LEVAQUIN [Concomitant]
     Active Substance: LEVOFLOXACIN
  2. WARFARIN [Concomitant]
     Active Substance: WARFARIN
  3. IPRATROPIUM [Concomitant]
     Active Substance: IPRATROPIUM
  4. TYKERB [Suspect]
     Active Substance: LAPATINIB DITOSYLATE
     Indication: BREAST CANCER METASTATIC
     Dosage: 1250 MG, QD
     Route: 065
     Dates: start: 20150227
  5. CEPHALEXIN. [Concomitant]
     Active Substance: CEPHALEXIN
  6. TYKERB [Suspect]
     Active Substance: LAPATINIB DITOSYLATE
     Dosage: 1250 MG, QD
     Route: 048
     Dates: start: 20150227
  7. CAPECITABINE. [Concomitant]
     Active Substance: CAPECITABINE
  8. ADVIL [Concomitant]
     Active Substance: IBUPROFEN
  9. CALCIUM [Concomitant]
     Active Substance: CALCIUM
  10. ESCITALOPRAM [Concomitant]
     Active Substance: ESCITALOPRAM OXALATE
  11. LOMOTIL [Concomitant]
     Active Substance: ATROPINE SULFATE\DIPHENOXYLATE HYDROCHLORIDE

REACTIONS (7)
  - Nausea [Not Recovered/Not Resolved]
  - Constipation [Not Recovered/Not Resolved]
  - Fatigue [Not Recovered/Not Resolved]
  - Amnesia [Not Recovered/Not Resolved]
  - Bone pain [Not Recovered/Not Resolved]
  - Paraesthesia [Not Recovered/Not Resolved]
  - Hypoaesthesia [Not Recovered/Not Resolved]

NARRATIVE: CASE EVENT DATE: 201503
